FAERS Safety Report 4450608-2 (Version None)
Quarter: 2004Q3

REPORT INFORMATION
  Report Type: 
  Country: None (occurrence: None)
  Receive Date: 20040913
  Receipt Date: 20040623
  Transmission Date: 20050211
  Serious: No
  Sender: FDA-Public Use
  Company Number: 2004-BP-05030BP(0)

PATIENT
  Age: 77 Year
  Sex: Female

DRUGS (3)
  1. SPIRIVA [Suspect]
     Indication: CHRONIC OBSTRUCTIVE AIRWAYS DISEASE
     Dosage: 18 MCG (18 MCG), IH
     Dates: start: 20040501
  2. ALBUTEROL/IPRATROPIUM [Concomitant]
  3. PREDNISONE [Concomitant]

REACTIONS (2)
  - DRY MOUTH [None]
  - HOARSENESS [None]
